FAERS Safety Report 22195946 (Version 2)
Quarter: 2023Q2

REPORT INFORMATION
  Report Type: Spontaneous
  Country: US (occurrence: US)
  Receive Date: 20230411
  Receipt Date: 20230414
  Transmission Date: 20230722
  Serious: Yes (Death, Life-Threatening, Other)
  Sender: FDA-Public Use
  Company Number: US-AMGEN-USASP2023058065

PATIENT

DRUGS (4)
  1. CARFILZOMIB [Suspect]
     Active Substance: CARFILZOMIB
     Indication: Plasma cell myeloma
     Dosage: UNK
     Route: 065
  2. PANOBINOSTAT [Concomitant]
     Active Substance: PANOBINOSTAT
     Indication: Plasma cell myeloma
     Dosage: 20 MILLIGRAM
     Route: 065
  3. PANOBINOSTAT [Concomitant]
     Active Substance: PANOBINOSTAT
     Dosage: 15 MILLIGRAM
     Route: 065
  4. PANOBINOSTAT [Concomitant]
     Active Substance: PANOBINOSTAT
     Dosage: 10 MILLIGRAM
     Route: 065

REACTIONS (7)
  - Death [Fatal]
  - Neutropenia [Unknown]
  - Thrombocytopenia [Unknown]
  - Anaemia [Unknown]
  - Fatigue [Unknown]
  - Plasma cell myeloma [Unknown]
  - Therapy partial responder [Unknown]
